FAERS Safety Report 22187120 (Version 1)
Quarter: 2023Q2

REPORT INFORMATION
  Report Type: Report from Study
  Country: DE (occurrence: DE)
  Receive Date: 20230407
  Receipt Date: 20230407
  Transmission Date: 20230721
  Serious: Yes (Other)
  Sender: FDA-Public Use
  Company Number: DE-CELGENE-DEU-20211108501

PATIENT
  Age: 24 Year
  Sex: Male
  Weight: 105 kg

DRUGS (2)
  1. ZEPOSIA [Suspect]
     Active Substance: OZANIMOD HYDROCHLORIDE
     Indication: Multiple sclerosis
     Route: 048
     Dates: start: 20210601
  2. ZEPOSIA [Suspect]
     Active Substance: OZANIMOD HYDROCHLORIDE
     Indication: Relapsing-remitting multiple sclerosis

REACTIONS (2)
  - Lymphopenia [Recovering/Resolving]
  - Leukopenia [Recovered/Resolved]

NARRATIVE: CASE EVENT DATE: 20210629
